FAERS Safety Report 6268786-1 (Version None)
Quarter: 2009Q3

REPORT INFORMATION
  Report Type: 
  Country: None (occurrence: None)
  Receive Date: 20090710
  Receipt Date: 20090710
  Transmission Date: 20100115
  Serious: Yes (Other)
  Sender: FDA-Public Use
  Company Number: None

PATIENT
  Sex: Female
  Weight: 67.8 kg

DRUGS (1)
  1. AMBIEN [Suspect]
     Dosage: ONCE

REACTIONS (2)
  - AGITATION [None]
  - SCREAMING [None]
